FAERS Safety Report 14143275 (Version 1)
Quarter: 2017Q4

REPORT INFORMATION
  Report Type: Spontaneous
  Country: BG (occurrence: BG)
  Receive Date: 20171030
  Receipt Date: 20171030
  Transmission Date: 20180321
  Serious: Yes (Other)
  Sender: FDA-Public Use
  Company Number: BG-B.I. PHARMACEUTICALS,INC./RIDGEFIELD-2017-BI-057601

PATIENT
  Age: 78 Year
  Sex: Female

DRUGS (1)
  1. GILOTRIF [Suspect]
     Active Substance: AFATINIB
     Indication: CANCER SURGERY
     Route: 048
     Dates: start: 201605

REACTIONS (6)
  - Corneal lesion [Unknown]
  - Rash [Unknown]
  - Corneal lesion [Unknown]
  - Diarrhoea [Unknown]
  - Adrenal adenoma [Unknown]
  - Paronychia [Unknown]

NARRATIVE: CASE EVENT DATE: 2016
